FAERS Safety Report 4891932-9 (Version None)
Quarter: 2006Q1

REPORT INFORMATION
  Report Type: 
  Country: None (occurrence: None)
  Receive Date: 20060126
  Receipt Date: 20051130
  Transmission Date: 20060701
  Serious: Yes (Life-Threatening, Other)
  Sender: FDA-Public Use
  Company Number: IT-ABBOTT-05P-083-0318316-00

PATIENT
  Age: 40 Year
  Sex: Female

DRUGS (9)
  1. DEPAKINE CHRONO TABLETS [Suspect]
     Indication: PANIC DISORDER WITH AGORAPHOBIA
     Route: 048
     Dates: start: 20040517, end: 20051104
  2. DEPAKINE CHRONO TABLETS [Suspect]
     Indication: PANIC ATTACK
  3. DEPAKINE CHRONO TABLETS [Suspect]
     Indication: CYCLOTHYMIC DISORDER
  4. SERTRALINE HYDROCHLORIDE [Suspect]
     Indication: PANIC DISORDER WITH AGORAPHOBIA
     Route: 048
     Dates: start: 20040324, end: 20051104
  5. SERTRALINE HYDROCHLORIDE [Suspect]
     Indication: PANIC ATTACK
     Route: 048
     Dates: start: 20040309, end: 20040324
  6. SERTRALINE HYDROCHLORIDE [Suspect]
     Indication: CYCLOTHYMIC DISORDER
  7. PARACETAMOL [Concomitant]
     Indication: DYSMENORRHOEA
     Route: 048
     Dates: start: 20051116, end: 20051116
  8. AISOSKIN [Concomitant]
     Indication: RASH MACULAR
     Route: 048
     Dates: start: 20051020, end: 20051104
  9. ALPRAZOLAM [Concomitant]
     Route: 048
     Dates: start: 20040309, end: 20050125

REACTIONS (10)
  - ASTHENIA [None]
  - DYSMENORRHOEA [None]
  - EPSTEIN-BARR VIRUS ANTIGEN POSITIVE [None]
  - GASTROINTESTINAL MUCOSAL DISORDER [None]
  - HERPES SIMPLEX SEROLOGY POSITIVE [None]
  - HYPOCHROMIC ANAEMIA [None]
  - MALAISE [None]
  - MICROCYTOSIS [None]
  - OBESITY [None]
  - POLYMENORRHOEA [None]
